FAERS Safety Report 15933577 (Version 1)
Quarter: 2019Q1

REPORT INFORMATION
  Report Type: Spontaneous
  Country: FR (occurrence: FR)
  Receive Date: 20190207
  Receipt Date: 20190207
  Transmission Date: 20190417
  Serious: Yes (Other)
  Sender: FDA-Public Use
  Company Number: FR-MYLANLABS-2019M1009155

PATIENT
  Age: 63 Year
  Sex: Male
  Weight: 88 kg

DRUGS (9)
  1. BISOPROLOL MYLAN [Concomitant]
     Active Substance: BISOPROLOL
  2. DIFFU K [Concomitant]
     Active Substance: POTASSIUM CHLORIDE
  3. COVERAM [Concomitant]
     Active Substance: AMLODIPINE\PERINDOPRIL
  4. FLECAINE [Concomitant]
     Active Substance: FLECAINIDE
  5. ELISOR [Concomitant]
     Active Substance: PRAVASTATIN SODIUM
  6. SOTALEX [Concomitant]
     Active Substance: SOTALOL
  7. FUROSEMIDE MYLAN [Suspect]
     Active Substance: FUROSEMIDE
     Indication: CARDIAC FAILURE
     Dosage: 20 MILLIGRAM, QD
     Route: 048
     Dates: start: 201802, end: 201804
  8. KALEORID LP [Concomitant]
     Active Substance: POTASSIUM CHLORIDE
  9. XARELTO [Concomitant]
     Active Substance: RIVAROXABAN

REACTIONS (3)
  - Product substitution issue [Recovered/Resolved]
  - Polyuria [Recovered/Resolved]
  - Renal impairment [Recovered/Resolved]

NARRATIVE: CASE EVENT DATE: 201802
